FAERS Safety Report 7055700-4 (Version None)
Quarter: 2010Q4

REPORT INFORMATION
  Report Type: 
  Country: None (occurrence: None)
  Receive Date: 20101021
  Receipt Date: 20101008
  Transmission Date: 20110411
  Serious: Yes (Hospitalization, Other)
  Sender: FDA-Public Use
  Company Number: US-ROCHE-576698

PATIENT
  Sex: Female
  Weight: 72.6 kg

DRUGS (4)
  1. ACCUTANE [Suspect]
     Dosage: STRENGTH: 40 MG AND 20 MG
     Route: 065
     Dates: start: 20030206, end: 20030220
  2. ACCUTANE [Suspect]
     Route: 065
     Dates: start: 20030221, end: 20030307
  3. ACCUTANE [Suspect]
     Route: 065
     Dates: start: 20030308, end: 20030322
  4. ACCUTANE [Suspect]
     Route: 065
     Dates: start: 20030323, end: 20030601

REACTIONS (7)
  - ASTEATOSIS [None]
  - COLITIS ULCERATIVE [None]
  - DRY MOUTH [None]
  - DRY SKIN [None]
  - INFLAMMATORY BOWEL DISEASE [None]
  - ORAL DISORDER [None]
  - PRECANCEROUS CELLS PRESENT [None]
